FAERS Safety Report 7263910-6 (Version None)
Quarter: 2011Q1

REPORT INFORMATION
  Report Type: 
  Country: None (occurrence: None)
  Receive Date: 20110130
  Receipt Date: 20101208
  Transmission Date: 20110831
  Serious: No
  Sender: FDA-Public Use
  Company Number: US-ABBOTT-10P-163-0690338-00

PATIENT
  Age: 24 Year
  Sex: Female

DRUGS (7)
  1. LIALDA [Concomitant]
     Indication: COLITIS ULCERATIVE
     Dosage: 4 TABLETS ONCE DAILY
  2. ALBUTEROL [Concomitant]
     Indication: PRODUCT USED FOR UNKNOWN INDICATION
  3. ALLEGRA [Concomitant]
     Indication: HYPERSENSITIVITY
     Dosage: DAILY
  4. BIRTH CONTROL PILLS [Concomitant]
     Indication: PRODUCT USED FOR UNKNOWN INDICATION
     Dosage: DAILY
  5. PREDNISONE [Concomitant]
     Indication: PRODUCT USED FOR UNKNOWN INDICATION
     Dosage: DAILY
  6. HUMIRA [Suspect]
     Indication: COLITIS ULCERATIVE
     Dosage: 80 MG (SECOND INJECTIONS) PER LOADING DOSE
     Dates: start: 20101124
  7. ZOLOFT [Concomitant]
     Indication: DEPRESSION

REACTIONS (2)
  - INJECTION SITE PAPULE [None]
  - INJECTION SITE ERYTHEMA [None]
